FAERS Safety Report 9741827 (Version 8)
Quarter: 2019Q1

REPORT INFORMATION
  Report Type: Report from Study
  Country: BR (occurrence: BR)
  Receive Date: 20131210
  Receipt Date: 20190118
  Transmission Date: 20190418
  Serious: Yes (Hospitalization, Other)
  Sender: FDA-Public Use
  Company Number: PHHY2013BR142011

PATIENT
  Sex: Female
  Weight: 69 kg

DRUGS (9)
  1. SANDOSTATIN LAR DEPOT [Suspect]
     Active Substance: OCTREOTIDE ACETATE
     Dosage: 30 MG, QMO
     Route: 030
     Dates: start: 2002
  2. ASA [Concomitant]
     Active Substance: ASPIRIN
     Indication: ANTICOAGULANT THERAPY
     Dosage: UNK UNK, QD (FROM 5 YEARS)
     Route: 048
  3. AAS [Concomitant]
     Active Substance: ASPIRIN
     Indication: BLOOD DISORDER
     Dosage: 1 DF (ONE TABLET), QD
     Route: 048
  4. OMEGA 3 6 9 [Concomitant]
     Active Substance: FISH OIL
     Indication: EYE DISORDER
     Dosage: 1 DF, QHS (AT NIGHT)
     Route: 048
  5. SANDOSTATIN LAR DEPOT [Suspect]
     Active Substance: OCTREOTIDE ACETATE
     Indication: ACROMEGALY
     Dosage: 20 MG, QMO  (EVERY 20 DAYS)
     Route: 030
     Dates: start: 2002
  6. SELOZOK [Concomitant]
     Active Substance: METOPROLOL SUCCINATE
     Indication: CARDIAC DISORDER
     Dosage: 25 MG, QD
     Route: 048
  7. GLUCOFORMIN [Concomitant]
     Active Substance: METFORMIN HYDROCHLORIDE
     Indication: DIABETES MELLITUS
     Dosage: 850 MG, TID (15 YEARS AGO)
     Route: 048
  8. ENALAPRIL [Concomitant]
     Active Substance: ENALAPRIL
     Indication: HYPERTENSION
     Dosage: 5 MG, BID (15 YEARS AGO)
     Route: 048
  9. DAONIL [Concomitant]
     Active Substance: GLYBURIDE
     Indication: DIABETES MELLITUS
     Dosage: 1 DF, BID (IN THE MORNING AND AT NIGHT)
     Route: 048

REACTIONS (19)
  - Visual impairment [Not Recovered/Not Resolved]
  - Stress [Unknown]
  - Fatigue [Not Recovered/Not Resolved]
  - Dyspepsia [Not Recovered/Not Resolved]
  - Amnesia [Recovering/Resolving]
  - Chest pain [Unknown]
  - Nasopharyngitis [Unknown]
  - Weight decreased [Not Recovered/Not Resolved]
  - Gastrointestinal neoplasm [Recovered/Resolved]
  - Confusional state [Unknown]
  - Cardiac disorder [Unknown]
  - Malaise [Not Recovered/Not Resolved]
  - Heart rate increased [Unknown]
  - Memory impairment [Recovering/Resolving]
  - Weight increased [Unknown]
  - Palpitations [Recovered/Resolved]
  - Libido decreased [Not Recovered/Not Resolved]
  - Hypoaesthesia [Unknown]
  - Decreased appetite [Unknown]

NARRATIVE: CASE EVENT DATE: 2003
